FAERS Safety Report 6681682-0 (Version None)
Quarter: 2010Q2

REPORT INFORMATION
  Report Type: 
  Country: None (occurrence: None)
  Receive Date: 20100412
  Receipt Date: 20100326
  Transmission Date: 20101027
  Serious: Yes (Hospitalization)
  Sender: FDA-Public Use
  Company Number: AUR-APL-2010-01015

PATIENT
  Age: 40 Year
  Sex: Female
  Weight: 55.8 kg

DRUGS (5)
  1. PAROXETINE HCL [Suspect]
     Indication: PANIC DISORDER
     Dosage: 20MG - DAILY - ORAL
     Route: 048
     Dates: start: 20081104, end: 20090107
  2. HANGEKOUBOTUKOU [Concomitant]
  3. SOLANAX [Concomitant]
  4. SENNARIDE [Concomitant]
  5. BIOFERMIN [Concomitant]

REACTIONS (2)
  - DRUG EXPOSURE DURING PREGNANCY [None]
  - ECTOPIC PREGNANCY [None]
